FAERS Safety Report 6657327-2 (Version None)
Quarter: 2010Q1

REPORT INFORMATION
  Report Type: 
  Country: None (occurrence: None)
  Receive Date: 20100330
  Receipt Date: 20100324
  Transmission Date: 20100710
  Serious: Yes (Congenital Anomaly)
  Sender: FDA-Public Use
  Company Number: US-BRISTOL-MYERS SQUIBB COMPANY-15034838

PATIENT
  Age: 1 Day
  Sex: Male
  Weight: 3 kg

DRUGS (6)
  1. BUSPAR [Suspect]
     Route: 064
     Dates: start: 20090101
  2. METFORMIN HCL [Suspect]
     Route: 064
     Dates: start: 20090101
  3. PROVIGIL [Suspect]
     Dosage: TABLET
     Route: 064
     Dates: start: 20090101
  4. LEVOTHYROXINE SODIUM [Suspect]
     Route: 064
     Dates: start: 20090101
  5. LEXAPRO [Suspect]
     Route: 064
     Dates: start: 20090101
  6. NASONEX [Suspect]
     Route: 064
     Dates: start: 20090101

REACTIONS (2)
  - TRANSPOSITION OF THE GREAT VESSELS [None]
  - VENTRICULAR SEPTAL DEFECT [None]
